FAERS Safety Report 4957623-0 (Version None)
Quarter: 2006Q1

REPORT INFORMATION
  Report Type: 
  Country: None (occurrence: None)
  Receive Date: 20060330
  Receipt Date: 20041122
  Transmission Date: 20060701
  Serious: Yes (Life-Threatening)
  Sender: FDA-Public Use
  Company Number: JP-SANOFI-SYNTHELABO-F01200403755

PATIENT
  Sex: Male
  Weight: 50 kg

DRUGS (34)
  1. CLOPIDOGREL [Suspect]
     Indication: ACUTE CORONARY SYNDROME
     Dosage: LOADING DOSE 300 MG FOLLOWED BY 75 MG DAILY
     Route: 048
     Dates: start: 20041113, end: 20041120
  2. BUFFERIN [Concomitant]
     Indication: ACUTE CORONARY SYNDROME
     Dosage: 81 MG
     Route: 048
     Dates: start: 20041114, end: 20041119
  3. BUFFERIN [Concomitant]
     Route: 048
     Dates: start: 20041120
  4. ARTIST [Suspect]
     Indication: HYPERTENSION
     Dosage: 2.5 MG
     Route: 048
     Dates: start: 20041114, end: 20041122
  5. ASPIRIN [Concomitant]
     Indication: ACUTE CORONARY SYNDROME
     Dosage: 81 MG
     Route: 048
     Dates: end: 20041113
  6. ASPIRIN [Concomitant]
     Route: 048
     Dates: start: 20041120
  7. POLYFUL [Concomitant]
     Indication: GASTROINTESTINAL DISORDER
     Dosage: 0.5 MG
     Route: 048
     Dates: end: 20041113
  8. LISITRIL [Concomitant]
     Indication: HYPERTENSION
     Dosage: 20 MG
     Route: 048
     Dates: end: 20041113
  9. RADEN [Concomitant]
     Indication: PROPHYLAXIS
     Dosage: 150 MG
     Route: 048
     Dates: end: 20041113
  10. HEPARIN SODIUM [Concomitant]
     Indication: ACUTE CORONARY SYNDROME
     Dosage: 4000 IU
     Route: 022
     Dates: start: 20041113, end: 20041113
  11. HEPARIN SODIUM [Concomitant]
     Dosage: 5000 IU
     Route: 022
     Dates: start: 20041113, end: 20041113
  12. HEPARIN SODIUM [Concomitant]
     Dosage: 3000 IU
     Route: 022
     Dates: start: 20041120, end: 20041120
  13. NITOROL [Concomitant]
     Indication: ACUTE CORONARY SYNDROME
     Dosage: 1 MG
     Route: 022
     Dates: start: 20041113, end: 20041113
  14. NITOROL [Concomitant]
     Dosage: 3 MG
     Route: 022
     Dates: start: 20041113, end: 20041113
  15. NITOROL [Concomitant]
     Dosage: 4 MG
     Route: 022
     Dates: start: 20041113, end: 20041113
  16. NITOROL [Concomitant]
     Dosage: 1 MG
     Route: 022
     Dates: start: 20041120, end: 20041120
  17. CARBOCAIN [Concomitant]
     Indication: LOCAL ANAESTHESIA
     Dosage: 3 ML
     Route: 030
     Dates: start: 20041113, end: 20041113
  18. CARBOCAIN [Concomitant]
     Dosage: 3 ML
     Route: 030
     Dates: start: 20041120, end: 20041120
  19. OMNIPAQUE 140 [Concomitant]
     Indication: ARTERIOGRAM CORONARY
     Dosage: 180 ML
     Route: 022
     Dates: start: 20041113, end: 20041113
  20. OMNIPAQUE 140 [Concomitant]
     Dosage: 65 ML
     Route: 022
     Dates: start: 20041120, end: 20041120
  21. KEFRAL [Concomitant]
     Indication: INFECTION PROPHYLAXIS
     Dosage: 250 MG
     Route: 048
     Dates: start: 20041113, end: 20041113
  22. KEFRAL [Concomitant]
     Dosage: 750 MG
     Route: 048
     Dates: start: 20041114, end: 20041115
  23. KEFRAL [Concomitant]
     Route: 048
     Dates: start: 20041116, end: 20041116
  24. KEFRAL [Concomitant]
     Route: 048
     Dates: start: 20041120, end: 20041122
  25. OLIVES K [Concomitant]
     Indication: ARRHYTHMIA
     Dosage: 5 ML/HOUR
     Route: 041
     Dates: start: 20041113, end: 20041115
  26. OLIVES K [Concomitant]
     Dosage: 3 ML/HOUR
     Route: 041
     Dates: start: 20041114, end: 20041114
  27. CERCINE [Concomitant]
     Indication: SEDATION
     Dosage: 5 MG
     Route: 048
     Dates: start: 20041113, end: 20041113
  28. LIDOQUICK [Concomitant]
     Indication: ARRHYTHMIA
     Route: 042
     Dates: start: 20041113, end: 20041113
  29. ZANTAC [Concomitant]
     Indication: PROPHYLAXIS
     Dosage: 150 MG
     Route: 048
     Dates: start: 20041113
  30. LONGES [Concomitant]
     Indication: HYPERTENSION
     Dosage: 20 MG
     Route: 048
     Dates: start: 20041114
  31. LIPITOR [Concomitant]
     Indication: HYPERLIPIDAEMIA
     Dosage: 10 MG
     Route: 048
     Dates: start: 20041114
  32. PANALDINE [Concomitant]
     Indication: ACUTE CORONARY SYNDROME
     Dosage: 100 MG
     Route: 048
     Dates: start: 20041120, end: 20041120
  33. LASIX [Concomitant]
     Indication: POLYURIA
     Dosage: 10 MG
     Route: 042
     Dates: start: 20041114, end: 20041114
  34. LAC-B [Concomitant]
     Indication: DIARRHOEA
     Dosage: 2 G
     Route: 048
     Dates: start: 20041117, end: 20041119

REACTIONS (2)
  - BRADYCARDIA [None]
  - DIARRHOEA [None]
